FAERS Safety Report 16903404 (Version 2)
Quarter: 2020Q4

REPORT INFORMATION
  Report Type: Spontaneous
  Country: DE (occurrence: DE)
  Receive Date: 20191010
  Receipt Date: 20201022
  Transmission Date: 20210113
  Serious: Yes (Other)
  Sender: FDA-Public Use
  Company Number: DE-VERTEX PHARMACEUTICALS-2019-009506

PATIENT
  Sex: Male

DRUGS (4)
  1. SYMKEVI [Suspect]
     Active Substance: IVACAFTOR\TEZACAFTOR
     Indication: CYSTIC FIBROSIS
     Dosage: 1 DOSAGE FORM (100MG/150MG), QD (MORNING DOSE)
     Route: 048
     Dates: start: 2017, end: 202009
  2. SODIUM CHLORIDE. [Concomitant]
     Active Substance: SODIUM CHLORIDE
     Dosage: NACL, ONLY INHALATION
  3. KALYDECO [Suspect]
     Active Substance: IVACAFTOR
     Indication: CYSTIC FIBROSIS
     Dosage: 150 MG, QD (EVENING DOSE)
     Route: 048
     Dates: start: 2017, end: 202009
  4. ADEK [Concomitant]

REACTIONS (2)
  - Suicidal ideation [Recovering/Resolving]
  - Depressive symptom [Recovering/Resolving]

NARRATIVE: CASE EVENT DATE: 2019
